FAERS Safety Report 7555980-2 (Version None)
Quarter: 2011Q2

REPORT INFORMATION
  Report Type: 
  Country: None (occurrence: None)
  Receive Date: 20110619
  Receipt Date: 20110607
  Transmission Date: 20111010
  Serious: Yes (Hospitalization, Other)
  Sender: FDA-Public Use
  Company Number: US-ELI_LILLY_AND_COMPANY-US201106003271

PATIENT
  Sex: Female

DRUGS (2)
  1. FORTEO [Suspect]
     Indication: OSTEOPOROSIS
     Dosage: 20 UG, QD
     Dates: start: 20091001, end: 20110101
  2. FORTEO [Suspect]
     Dosage: 20 UG, QD
     Dates: start: 20110301

REACTIONS (8)
  - KNEE ARTHROPLASTY [None]
  - LIMB DISCOMFORT [None]
  - MUSCULOSKELETAL DISCOMFORT [None]
  - GAIT DISTURBANCE [None]
  - PRURITUS [None]
  - ARTHRITIS [None]
  - ARTHRALGIA [None]
  - ARTHROPATHY [None]
